FAERS Safety Report 8024042-2 (Version None)
Quarter: 2012Q1

REPORT INFORMATION
  Report Type: 
  Country: None (occurrence: None)
  Receive Date: 20120105
  Receipt Date: 20111230
  Transmission Date: 20120608
  Serious: Yes (Other)
  Sender: FDA-Public Use
  Company Number: US-BRISTOL-MYERS SQUIBB COMPANY-16323529

PATIENT
  Age: 47 Year
  Sex: Male
  Weight: 51 kg

DRUGS (2)
  1. FENOFIBRATE [Concomitant]
     Indication: BLOOD CHOLESTEROL INCREASED
  2. ABILIFY [Suspect]
     Indication: INSOMNIA
     Dates: start: 20110815, end: 20110821

REACTIONS (4)
  - ANXIETY [None]
  - INSOMNIA [None]
  - FEELING ABNORMAL [None]
  - DRUG INEFFECTIVE [None]
